FAERS Safety Report 9375549 (Version 2)
Quarter: 2013Q3

REPORT INFORMATION
  Report Type: Spontaneous
  Country: US (occurrence: US)
  Receive Date: 20130628
  Receipt Date: 20130711
  Transmission Date: 20140515
  Serious: No
  Sender: FDA-Public Use
  Company Number: US-B.I. PHARMACEUTICALS,INC./RIDGEFIELD-2013-BI-17982BP

PATIENT
  Age: 76 Year
  Sex: Female
  Weight: 104 kg

DRUGS (4)
  1. COMBIVENT [Suspect]
     Indication: CHRONIC OBSTRUCTIVE PULMONARY DISEASE
     Dosage: STRENGTH: 20 MCG / 100 MCG; DAILY DOSE: 160 MCG / 800 MCG
     Route: 055
     Dates: start: 201305
  2. COMBIVENT [Suspect]
     Route: 055
     Dates: start: 20130604, end: 20130703
  3. LISINOPRIL-HYDROCHLOROTHIAZIDE [Concomitant]
     Indication: HYPERTENSION
     Dosage: (TABLET) STRENGTH: 20 MG/12.5 MG; DAILY DOSE: 20 MG/12.5 MG
     Route: 048
  4. PREDNISONE [Concomitant]
     Indication: POLYMYALGIA RHEUMATICA
     Route: 048

REACTIONS (3)
  - Cough [Not Recovered/Not Resolved]
  - Overdose [Not Recovered/Not Resolved]
  - Cough [Recovered/Resolved]
